FAERS Safety Report 17537796 (Version 1)
Quarter: 2020Q1

REPORT INFORMATION
  Report Type: Spontaneous
  Country: GB (occurrence: GB)
  Receive Date: 20200313
  Receipt Date: 20200313
  Transmission Date: 20200409
  Serious: Yes (Hospitalization)
  Sender: FDA-Public Use
  Company Number: NVSC2020GB070713

PATIENT
  Age: 82 Year
  Sex: Female

DRUGS (1)
  1. RISPERIDONE. [Suspect]
     Active Substance: RISPERIDONE
     Indication: PRODUCT USED FOR UNKNOWN INDICATION
     Dosage: 1000 UG, QD (500 MCG, BID)
     Route: 065

REACTIONS (4)
  - Somnolence [Unknown]
  - Unresponsive to stimuli [Unknown]
  - Product dispensing error [Unknown]
  - Overdose [Unknown]
